FAERS Safety Report 7052461-X (Version None)
Quarter: 2010Q4

REPORT INFORMATION
  Report Type: 
  Country: None (occurrence: None)
  Receive Date: 20101019
  Receipt Date: 20101006
  Transmission Date: 20110411
  Serious: No
  Sender: FDA-Public Use
  Company Number: CA-ELI_LILLY_AND_COMPANY-CA201010001473

PATIENT
  Sex: Female

DRUGS (6)
  1. ZYPREXA [Suspect]
     Dosage: 10 MG, DAILY (1/D)
     Route: 065
     Dates: start: 20060503
  2. DIVALPROEX SODIUM [Concomitant]
     Dosage: 500 MG, 2/D
     Route: 065
     Dates: start: 20060328
  3. SEROQUEL [Concomitant]
     Dosage: 200 MG, 2/D
     Route: 065
     Dates: start: 20060328
  4. ACETAMINOPHEN [Concomitant]
     Dosage: 325 MG, AS NEEDED
     Route: 065
     Dates: start: 20060319
  5. FUCIDINE CAP [Concomitant]
     Dosage: UNK, APPLY TWICE DAILY TO AFFECTED AREAS FOR 7 DAYS
     Dates: start: 20060503
  6. LISINOPRIL [Concomitant]
     Indication: HYPERTENSION
     Dosage: UNK, UNKNOWN
     Route: 065

REACTIONS (21)
  - ABDOMINAL DISTENSION [None]
  - ANXIETY [None]
  - BLOOD CHOLESTEROL INCREASED [None]
  - CONSTIPATION [None]
  - DIZZINESS [None]
  - DRY MOUTH [None]
  - EYE ROLLING [None]
  - FATIGUE [None]
  - FLUID RETENTION [None]
  - FOOT DEFORMITY [None]
  - GAIT DISTURBANCE [None]
  - HYPERTENSION [None]
  - HYPOAESTHESIA [None]
  - MENORRHAGIA [None]
  - NAUSEA [None]
  - NERVOUSNESS [None]
  - SENSITIVITY OF TEETH [None]
  - TINEA PEDIS [None]
  - VARICOSE VEIN [None]
  - VISION BLURRED [None]
  - WEIGHT INCREASED [None]
